FAERS Safety Report 5105079-X (Version None)
Quarter: 2006Q3

REPORT INFORMATION
  Report Type: 
  Country: None (occurrence: None)
  Receive Date: 20060911
  Receipt Date: 20060824
  Transmission Date: 20061208
  Serious: Yes (Other)
  Sender: FDA-Public Use
  Company Number: 8018601

PATIENT
  Age: 24 Month

DRUGS (1)
  1. KEPPRA [Suspect]

REACTIONS (1)
  - BLOOD UREA NITROGEN/CREATININE RATIO INCREASED [None]
